FAERS Safety Report 7210549-4 (Version None)
Quarter: 2011Q1

REPORT INFORMATION
  Report Type: 
  Country: None (occurrence: None)
  Receive Date: 20110105
  Receipt Date: 20101229
  Transmission Date: 20110831
  Serious: Yes (Death)
  Sender: FDA-Public Use
  Company Number: US-CELGENEUS-163-21880-10123341

PATIENT
  Sex: Male

DRUGS (9)
  1. KEPPRA [Concomitant]
     Route: 065
  2. PROCHLORPERAZINE [Concomitant]
     Route: 065
  3. REVLIMID [Suspect]
     Indication: LYMPHOMA
     Route: 048
     Dates: start: 20100901
  4. ATIVAN [Concomitant]
     Route: 065
  5. SCOPOLAMINE [Concomitant]
     Dosage: 0.4MG/ML
     Route: 050
  6. PROTONIX [Concomitant]
     Route: 065
  7. ZOFRAN [Concomitant]
     Route: 065
  8. NEPHROCAPS [Concomitant]
     Route: 065
  9. POTASSIUM [Concomitant]
     Route: 065

REACTIONS (1)
  - DEATH [None]
